FAERS Safety Report 7947867-8 (Version None)
Quarter: 2011Q4

REPORT INFORMATION
  Report Type: 
  Country: None (occurrence: None)
  Receive Date: 20111125
  Receipt Date: 20111116
  Transmission Date: 20120403
  Serious: Yes (Hospitalization, Other)
  Sender: FDA-Public Use
  Company Number: 2011SP053894

PATIENT
  Age: 84 Year
  Sex: Female

DRUGS (4)
  1. MIRTAZAPINE [Suspect]
     Indication: DEPRESSION
     Dosage: 1 DF;QD;PO
     Route: 048
     Dates: start: 20110501, end: 20110618
  2. BISOPROLOL FUMARATE [Concomitant]
  3. COUMADIN [Concomitant]
  4. CORDARONE [Concomitant]

REACTIONS (5)
  - COGNITIVE DISORDER [None]
  - EPILEPSY [None]
  - ELECTROENCEPHALOGRAM ABNORMAL [None]
  - AMNESIA [None]
  - DEMENTIA ALZHEIMER'S TYPE [None]
